FAERS Safety Report 7268535-4 (Version None)
Quarter: 2011Q1

REPORT INFORMATION
  Report Type: 
  Country: None (occurrence: None)
  Receive Date: 20110201
  Receipt Date: 20110119
  Transmission Date: 20110831
  Serious: Yes (Death, Hospitalization)
  Sender: FDA-Public Use
  Company Number: US-ACTELION-A-US2010-42043

PATIENT

DRUGS (3)
  1. REVATIO [Concomitant]
  2. TRACLEER [Suspect]
     Indication: PULMONARY ARTERIAL HYPERTENSION
     Dosage: UNK
     Route: 048
     Dates: start: 20090910, end: 20110111
  3. CALCIUM CHANNEL BLOCKERS [Concomitant]

REACTIONS (4)
  - DEATH [None]
  - DYSPNOEA [None]
  - BRONCHITIS [None]
  - PULMONARY FIBROSIS [None]
